FAERS Safety Report 7808428-4 (Version None)
Quarter: 2011Q4

REPORT INFORMATION
  Report Type: 
  Country: None (occurrence: None)
  Receive Date: 20111007
  Receipt Date: 20110922
  Transmission Date: 20120403
  Serious: Yes (Other)
  Sender: FDA-Public Use
  Company Number: 1000024335

PATIENT
  Age: 73 Year
  Sex: Female

DRUGS (13)
  1. MEMANTINE [Suspect]
     Indication: DEMENTIA ALZHEIMER'S TYPE
     Dosage: 5 MG (5 MG, 1 IN 1 D), ORAL, 10 MG (10 MG, 1 IN 1 D), ORAL, 15 MG (15 MG, 1 IN 1 D), ORAL
     Route: 048
     Dates: start: 20110611, end: 20110617
  2. MEMANTINE [Suspect]
     Indication: DEMENTIA ALZHEIMER'S TYPE
     Dosage: 5 MG (5 MG, 1 IN 1 D), ORAL, 10 MG (10 MG, 1 IN 1 D), ORAL, 15 MG (15 MG, 1 IN 1 D), ORAL
     Route: 048
     Dates: start: 20110618, end: 20110624
  3. MEMANTINE [Suspect]
     Indication: DEMENTIA ALZHEIMER'S TYPE
     Dosage: 5 MG (5 MG, 1 IN 1 D), ORAL, 10 MG (10 MG, 1 IN 1 D), ORAL, 15 MG (15 MG, 1 IN 1 D), ORAL
     Route: 048
     Dates: start: 20110625, end: 20110701
  4. DEPAKENE R (VALPROATE SODIUM) (VALPROATE SODIUM) [Concomitant]
  5. GASTER D (FAMOTIDINE) (FAMOTIDINE) [Concomitant]
  6. ARICEPT [Concomitant]
  7. CRESTOR [Concomitant]
  8. RIZE (CLOTIAZEPAM) (CLOTIAZEPAM) [Concomitant]
  9. PL (CAFFEINE, SALICYLAMIDE, PARACETAMOL, PROMETHAZINE) (CAFFEINE, SALI [Concomitant]
  10. YOKUKAN-SAN (YOKUKAN-SAN) (YOKUKAN-SAN) [Concomitant]
  11. CISDYNE (CARBOCISTEINE) (CARBOCISTEINE) [Concomitant]
  12. MEMANTINE [Suspect]
     Indication: DEMENTIA ALZHEIMER'S TYPE
     Dosage: 20 MG (20 MG, 1 IN 1 D), ORAL
     Route: 048
     Dates: start: 20110702, end: 20110715
  13. BLOPRESS (CANDESARTAN CILEXETIL) (CANDESARTAN CILEXETIL) [Concomitant]

REACTIONS (8)
  - CHILLS [None]
  - PARAESTHESIA [None]
  - PERIPHERAL COLDNESS [None]
  - FORMICATION [None]
  - SOMNOLENCE [None]
  - DECREASED APPETITE [None]
  - VISUAL IMPAIRMENT [None]
  - GAIT DISTURBANCE [None]
